FAERS Safety Report 9575257 (Version 1)
Quarter: 2013Q4

REPORT INFORMATION
  Report Type: Spontaneous
  Country: RU (occurrence: RU)
  Receive Date: 20131001
  Receipt Date: 20131001
  Transmission Date: 20140711
  Serious: Yes (Hospitalization)
  Sender: FDA-Public Use
  Company Number: RU-VIIV HEALTHCARE LIMITED-B0926327A

PATIENT
  Age: 36 Year
  Sex: Female

DRUGS (2)
  1. LAMIVUDINE-HIV [Suspect]
     Indication: HIV INFECTION
     Route: 048
  2. KALETRA [Suspect]
     Indication: HIV INFECTION
     Route: 048

REACTIONS (5)
  - Hepatic enzyme increased [Unknown]
  - Hepatomegaly [Unknown]
  - Splenomegaly [Unknown]
  - Dyspepsia [Unknown]
  - Exposure during pregnancy [Unknown]
